FAERS Safety Report 16836764 (Version 1)
Quarter: 2019Q3

REPORT INFORMATION
  Report Type: Spontaneous
  Country: US (occurrence: US)
  Receive Date: 20190922
  Receipt Date: 20190922
  Transmission Date: 20191005
  Serious: No
  Sender: FDA-Public Use
  Company Number: US-ASTRAZENECA-2019SF32325

PATIENT
  Sex: Female

DRUGS (5)
  1. SYMBICORT [Suspect]
     Active Substance: BUDESONIDE\FORMOTEROL FUMARATE DIHYDRATE
     Route: 055
  2. ALBUTEROL. [Concomitant]
     Active Substance: ALBUTEROL
  3. CLARITON [Concomitant]
     Active Substance: UNSPECIFIED INGREDIENT
  4. SINGULAIR [Concomitant]
     Active Substance: MONTELUKAST SODIUM
  5. PEPCID [Concomitant]
     Active Substance: FAMOTIDINE

REACTIONS (2)
  - Anxiety [Recovered/Resolved]
  - Paranoia [Recovered/Resolved]
